FAERS Safety Report 19885619 (Version 1)
Quarter: 2021Q3

REPORT INFORMATION
  Report Type: Report from Study
  Country: US (occurrence: US)
  Receive Date: 20210927
  Receipt Date: 20210927
  Transmission Date: 20211014
  Serious: Yes (Other)
  Sender: FDA-Public Use
  Company Number: US-ASTRAZENECA-2021A733306

PATIENT
  Age: 58 Year
  Sex: Female
  Weight: 57.2 kg

DRUGS (1)
  1. TAGRISSO [Suspect]
     Active Substance: OSIMERTINIB
     Indication: NON-SMALL CELL LUNG CANCER STAGE III
     Route: 048
     Dates: start: 20210823

REACTIONS (6)
  - Nail bed disorder [Unknown]
  - Pain of skin [Unknown]
  - Dry skin [Unknown]
  - Acne [Unknown]
  - Nail bed tenderness [Unknown]
  - Arthralgia [Unknown]
